FAERS Safety Report 20319360 (Version 1)
Quarter: 2022Q1

REPORT INFORMATION
  Report Type: Spontaneous
  Country: FR (occurrence: FR)
  Receive Date: 20220110
  Receipt Date: 20220110
  Transmission Date: 20220424
  Serious: Yes (Hospitalization)
  Sender: FDA-Public Use
  Company Number: FR-ANIPHARMA-2022-FR-000010

PATIENT
  Age: 85 Year
  Sex: Female
  Weight: 47 kg

DRUGS (3)
  1. CANDESARTAN CILEXETIL [Suspect]
     Active Substance: CANDESARTAN CILEXETIL
     Indication: Hypertension
     Dosage: 16 MG QD
     Route: 048
     Dates: end: 20210616
  2. METFORMIN HYDROCHLORIDE [Suspect]
     Active Substance: METFORMIN HYDROCHLORIDE
     Dosage: 1500 MG QD
     Route: 048
     Dates: end: 20210616
  3. FUROSEMIDE [Suspect]
     Active Substance: FUROSEMIDE
     Dosage: 20 MG QD
     Route: 048
     Dates: end: 20210616

REACTIONS (2)
  - Lactic acidosis [Recovered/Resolved]
  - Acute kidney injury [Recovered/Resolved]

NARRATIVE: CASE EVENT DATE: 20210616
